FAERS Safety Report 19461090 (Version 1)
Quarter: 2021Q2

REPORT INFORMATION
  Report Type: Spontaneous
  Country: JP (occurrence: JP)
  Receive Date: 20210625
  Receipt Date: 20210625
  Transmission Date: 20210717
  Serious: Yes (Death, Hospitalization, Other)
  Sender: FDA-Public Use
  Company Number: JP-ROCHE-2835835

PATIENT
  Age: 7 Decade
  Sex: Male

DRUGS (3)
  1. PREDONINE [Suspect]
     Active Substance: PREDNISOLONE
     Indication: NEUROMYELITIS OPTICA SPECTRUM DISORDER
     Route: 048
  2. ENSPRYNG [Suspect]
     Active Substance: SATRALIZUMAB-MWGE
     Indication: NEUROMYELITIS OPTICA SPECTRUM DISORDER
     Route: 058
     Dates: start: 20201225, end: 2021
  3. ENSPRYNG [Suspect]
     Active Substance: SATRALIZUMAB-MWGE
     Route: 058
     Dates: start: 20210319, end: 20210416

REACTIONS (7)
  - Renal impairment [Unknown]
  - Spondylitis [Unknown]
  - Acquired diaphragmatic eventration [Unknown]
  - Pneumonia [Unknown]
  - Urinary tract infection [Recovered/Resolved]
  - Gastrointestinal haemorrhage [Fatal]
  - Cardiovascular insufficiency [Unknown]

NARRATIVE: CASE EVENT DATE: 2021
